FAERS Safety Report 9540438 (Version 1)
Quarter: 2013Q3

REPORT INFORMATION
  Report Type: Spontaneous
  Country: FR (occurrence: FR)
  Receive Date: 20130920
  Receipt Date: 20130920
  Transmission Date: 20140515
  Serious: Yes (Hospitalization)
  Sender: FDA-Public Use
  Company Number: FR-VIIV HEALTHCARE LIMITED-B0922158A

PATIENT
  Age: 57 Year
  Sex: Male
  Weight: 56 kg

DRUGS (10)
  1. EPIVIR [Suspect]
     Indication: HIV INFECTION
     Route: 048
     Dates: start: 20130619, end: 20130809
  2. KIVEXA [Suspect]
     Indication: HIV INFECTION
     Route: 065
  3. PREZISTA [Suspect]
     Indication: HIV INFECTION
     Dosage: 600MG THREE TIMES PER DAY
     Route: 048
     Dates: start: 201305, end: 20130809
  4. VIDEX [Concomitant]
     Indication: HIV INFECTION
     Dosage: 400MG PER DAY
     Route: 048
     Dates: start: 20130619, end: 20130809
  5. PLAVIX [Concomitant]
     Route: 065
  6. TRIATEC [Concomitant]
     Route: 065
  7. LIPANTHYL [Concomitant]
     Route: 065
  8. SECTRAL [Concomitant]
     Route: 065
  9. NORVIR [Concomitant]
     Indication: HIV INFECTION
     Route: 065
  10. LANTUS [Concomitant]
     Route: 065

REACTIONS (15)
  - Pancreatitis acute [Recovered/Resolved]
  - Hepatitis cholestatic [Recovered/Resolved]
  - Jaundice [Unknown]
  - Chromaturia [Unknown]
  - Faeces discoloured [Unknown]
  - Weight decreased [Unknown]
  - Hypertriglyceridaemia [Unknown]
  - Blood bilirubin increased [Unknown]
  - Blood creatinine increased [Unknown]
  - Hepatomegaly [Unknown]
  - Oedematous pancreatitis [Unknown]
  - Localised intraabdominal fluid collection [Unknown]
  - Lipase increased [Unknown]
  - C-reactive protein increased [Unknown]
  - Cholangitis [Unknown]
